FAERS Safety Report 20552386 (Version 1)
Quarter: 2022Q1

REPORT INFORMATION
  Report Type: Spontaneous
  Country: DE (occurrence: None)
  Receive Date: 20220304
  Receipt Date: 20220304
  Transmission Date: 20220423
  Serious: Yes (Other)
  Sender: FDA-Public Use
  Company Number: DE-Fresenius Kabi-FK202202426

PATIENT
  Age: 6 Month
  Sex: Male

DRUGS (1)
  1. PROPOFOL [Suspect]
     Active Substance: PROPOFOL
     Indication: Sedative therapy
     Route: 065

REACTIONS (3)
  - Epilepsy [Recovered/Resolved]
  - Status epilepticus [Recovered/Resolved]
  - Encephalopathy [Recovered/Resolved]
